FAERS Safety Report 13603207 (Version 1)
Quarter: 2017Q2

REPORT INFORMATION
  Report Type: Report from Study
  Country: US (occurrence: US)
  Receive Date: 20170601
  Receipt Date: 20170601
  Transmission Date: 20170830
  Serious: Yes (Hospitalization)
  Sender: FDA-Public Use
  Company Number: US-ACTELION-A-US2016-143800

PATIENT
  Age: 74 Year
  Sex: Female

DRUGS (2)
  1. NIFEDIPINE. [Concomitant]
     Active Substance: NIFEDIPINE
  2. OPSUMIT [Suspect]
     Active Substance: MACITENTAN
     Indication: PULMONARY ARTERIAL HYPERTENSION
     Dosage: 10 MG, UNK
     Route: 048
     Dates: start: 20160901

REACTIONS (10)
  - Cardiac septal defect [Unknown]
  - Back pain [Unknown]
  - Multiple allergies [Unknown]
  - Sciatica [Unknown]
  - Gastrooesophageal reflux disease [Unknown]
  - Abdominal pain upper [Unknown]
  - Headache [Unknown]
  - Palpitations [Unknown]
  - Cardiac septal defect repair [Unknown]
  - Swelling face [Unknown]
